FAERS Safety Report 4353609-8 (Version None)
Quarter: 2004Q2

REPORT INFORMATION
  Report Type: 
  Country: None (occurrence: None)
  Receive Date: 20040430
  Receipt Date: 20040421
  Transmission Date: 20050107
  Serious: Yes (Death)
  Sender: FDA-Public Use
  Company Number: 2004027644

PATIENT
  Age: 31 Year
  Sex: Female

DRUGS (1)
  1. DOFETILIDE (DOFETILIDE) [Suspect]
     Indication: ATRIAL FIBRILLATION
     Dosage: 750 MCG DAILY, ORAL
     Route: 048
     Dates: start: 20030610, end: 20040101

REACTIONS (1)
  - DEATH [None]
